FAERS Safety Report 9715935 (Version 1)
Quarter: 2013Q4

REPORT INFORMATION
  Report Type: Spontaneous
  Country: US (occurrence: US)
  Receive Date: 20131127
  Receipt Date: 20131127
  Transmission Date: 20140711
  Serious: Yes (Other)
  Sender: FDA-Public Use
  Company Number: US-PERRIGO-13US011994

PATIENT
  Age: 41 Year
  Sex: Male

DRUGS (1)
  1. ACETAMINOPHEN 650MG ER 544 [Suspect]
     Indication: PYREXIA
     Dosage: CUMULATIVE DOSE 20.8 G
     Route: 048

REACTIONS (2)
  - Metabolic acidosis [Unknown]
  - Pyroglutamate increased [Unknown]
